FAERS Safety Report 9807152 (Version 1)
Quarter: 2014Q1

REPORT INFORMATION
  Report Type: Spontaneous
  Country: US (occurrence: US)
  Receive Date: 20140110
  Receipt Date: 20140110
  Transmission Date: 20141002
  Serious: Yes (Hospitalization, Other)
  Sender: FDA-Public Use
  Company Number: US-BIOGENIDEC-2014BI000433

PATIENT
  Age: 52 Year
  Sex: Female

DRUGS (1)
  1. TYSABRI [Suspect]
     Indication: RELAPSING-REMITTING MULTIPLE SCLEROSIS
     Route: 042
     Dates: start: 20111012, end: 20130104

REACTIONS (7)
  - Lymphoma [Not Recovered/Not Resolved]
  - Lung neoplasm malignant [Unknown]
  - Mental disorder [Not Recovered/Not Resolved]
  - Sensation of heaviness [Not Recovered/Not Resolved]
  - Aphasia [Recovered/Resolved with Sequelae]
  - Confusional state [Not Recovered/Not Resolved]
  - Abasia [Not Recovered/Not Resolved]
